FAERS Safety Report 6405162-2 (Version None)
Quarter: 2009Q4

REPORT INFORMATION
  Report Type: 
  Country: None (occurrence: None)
  Receive Date: 20091019
  Receipt Date: 20091008
  Transmission Date: 20100525
  Serious: No
  Sender: FDA-Public Use
  Company Number: US-BAYER-200915264BCC

PATIENT
  Age: 77 Year
  Sex: Female
  Weight: 51 kg

DRUGS (2)
  1. ALEVE (CAPLET) [Suspect]
     Indication: ARTHRALGIA
     Dosage: CONSUMER TOOK ONE OR TWO ALEVE CAPLETS EACH WEEK ON UNKNOWN DATES
     Route: 048
  2. CRESTOR [Concomitant]
     Route: 065

REACTIONS (1)
  - PHOTOPSIA [None]
